FAERS Safety Report 7745291-4 (Version None)
Quarter: 2011Q3

REPORT INFORMATION
  Report Type: 
  Country: None (occurrence: None)
  Receive Date: 20110819
  Receipt Date: 20110620
  Transmission Date: 20111222
  Serious: Yes (Other)
  Sender: FDA-Public Use
  Company Number: 034454

PATIENT
  Age: 54 Year
  Sex: Male
  Weight: 102 kg

DRUGS (8)
  1. DEPAKOTE ER [Concomitant]
  2. IMODIUM [Concomitant]
  3. BENICAR HCT [Concomitant]
  4. LACOSAMIDE [Suspect]
     Indication: COMPLEX PARTIAL SEIZURES
     Dosage: 400 MG
     Dates: start: 20100413
  5. VERPAMIL HCL [Concomitant]
  6. XALATAN [Concomitant]
  7. PRIMIDONE [Concomitant]
  8. ROSUVASTATIN [Concomitant]

REACTIONS (1)
  - SOMNOLENCE [None]
